FAERS Safety Report 4719370-X (Version None)
Quarter: 2005Q3

REPORT INFORMATION
  Report Type: 
  Country: None (occurrence: None)
  Receive Date: 20050721
  Receipt Date: 20050713
  Transmission Date: 20060218
  Serious: Yes (Other)
  Sender: FDA-Public Use
  Company Number: NL-JNJFOC-20050702681

PATIENT
  Age: 60 Year
  Sex: Female

DRUGS (8)
  1. REMICADE [Suspect]
     Indication: RHEUMATOID ARTHRITIS
     Route: 042
  2. APROVEL [Concomitant]
     Route: 048
  3. LEVOTHYROXINE [Concomitant]
     Route: 048
  4. LEVOTHYROXINE [Concomitant]
     Route: 048
  5. DICLOFENAC SODIUM [Concomitant]
     Route: 048
  6. DICLOFENAC SODIUM [Concomitant]
     Route: 048
  7. PANTOPRAZOLE SODIUM [Concomitant]
     Route: 048
  8. PARACETEMOL [Concomitant]
     Route: 048

REACTIONS (1)
  - NEPHROTIC SYNDROME [None]
